FAERS Safety Report 16941776 (Version 1)
Quarter: 2019Q4

REPORT INFORMATION
  Report Type: Spontaneous
  Country: US (occurrence: US)
  Receive Date: 20191020
  Receipt Date: 20191020
  Transmission Date: 20200122
  Serious: No
  Sender: FDA-Public Use
  Company Number: None

PATIENT
  Age: 26 Year
  Sex: Female
  Weight: 67.5 kg

DRUGS (2)
  1. DULOXETINE DR [Suspect]
     Active Substance: DULOXETINE
     Indication: AFFECTIVE DISORDER
     Dosage: ?          QUANTITY:1 CAPSULE(S);?
     Route: 048
     Dates: start: 20190911, end: 20191011
  2. DULOXETINE DR [Suspect]
     Active Substance: DULOXETINE
     Indication: DEPRESSION
     Dosage: ?          QUANTITY:1 CAPSULE(S);?
     Route: 048
     Dates: start: 20190911, end: 20191011

REACTIONS (6)
  - Product substitution issue [None]
  - Abnormal dreams [None]
  - Somnolence [None]
  - Therapeutic product effect incomplete [None]
  - Hypersomnia [None]
  - Depressed mood [None]

NARRATIVE: CASE EVENT DATE: 20190911
